FAERS Safety Report 8542554-X (Version None)
Quarter: 2012Q3

REPORT INFORMATION
  Report Type: 
  Country: None (occurrence: None)
  Receive Date: 20120726
  Receipt Date: 20120713
  Transmission Date: 20120928
  Serious: No
  Sender: FDA-Public Use
  Company Number: US-009507513-1207USA007309

PATIENT

DRUGS (1)
  1. CLARINEX [Suspect]
     Route: 048

REACTIONS (1)
  - INSOMNIA [None]
